FAERS Safety Report 19382501 (Version 1)
Quarter: 2021Q2

REPORT INFORMATION
  Report Type: Spontaneous
  Country: US (occurrence: US)
  Receive Date: 20210607
  Receipt Date: 20210607
  Transmission Date: 20210717
  Serious: No
  Sender: FDA-Public Use
  Company Number: US-PFIZER INC-2021284303

PATIENT
  Age: 82 Year
  Sex: Female

DRUGS (2)
  1. BRAFTOVI [Suspect]
     Active Substance: ENCORAFENIB
     Dosage: 300 MG
  2. MEKTOVI [Suspect]
     Active Substance: BINIMETINIB
     Dosage: 45 MG

REACTIONS (1)
  - Rash [Unknown]
